FAERS Safety Report 8943888 (Version 1)
Quarter: 2012Q4

REPORT INFORMATION
  Report Type: 
  Country: JP (occurrence: JP)
  Receive Date: 20121204
  Receipt Date: 20121204
  Transmission Date: 20130627
  Serious: Yes (Hospitalization)
  Sender: FDA-Public Use
  Company Number: JP-JNJFOC-20121103332

PATIENT
  Age: 58 Year
  Sex: Male
  Weight: 51.7 kg

DRUGS (17)
  1. RISPERDAL [Suspect]
     Indication: IRRITABILITY
     Route: 048
     Dates: start: 20120615, end: 20120617
  2. RISPERDAL [Suspect]
     Indication: IRRITABILITY
     Route: 048
     Dates: start: 20120730, end: 20120827
  3. RISPERDAL [Suspect]
     Indication: IRRITABILITY
     Route: 048
     Dates: start: 20120618, end: 20120705
  4. UNKNOWN MEDICATION [Suspect]
     Indication: DEMENTIA ALZHEIMER^S TYPE
     Route: 030
     Dates: start: 20111021, end: 20111021
  5. SAIREI-TO [Suspect]
     Indication: SUBDURAL HAEMATOMA
     Route: 048
     Dates: start: 20120630, end: 20120816
  6. AMARYL [Suspect]
     Indication: PRODUCT USED FOR UNKNOWN INDICATION
     Route: 048
     Dates: start: 20120705, end: 20120711
  7. AMARYL [Suspect]
     Indication: PRODUCT USED FOR UNKNOWN INDICATION
     Route: 048
     Dates: start: 20120626, end: 20120704
  8. AMARYL [Suspect]
     Indication: PRODUCT USED FOR UNKNOWN INDICATION
     Route: 048
     Dates: start: 20120712, end: 20120823
  9. SITAGLIPTIN [Suspect]
     Indication: DIABETES MELLITUS
     Route: 048
     Dates: start: 20120620, end: 20120823
  10. DEPAKENE [Suspect]
     Indication: IRRITABILITY
     Route: 065
     Dates: start: 20120726
  11. DEPAKENE [Suspect]
     Indication: IRRITABILITY
     Route: 065
  12. DEPAKENE [Suspect]
     Indication: IRRITABILITY
     Route: 065
     Dates: start: 20120804, end: 20120810
  13. DEPAKENE [Suspect]
     Indication: IRRITABILITY
     Route: 065
  14. UNKNOWN MEDICATION [Concomitant]
     Route: 065
     Dates: start: 20090929, end: 20120704
  15. VOGLIBOSE [Concomitant]
     Route: 065
     Dates: start: 200904
  16. VOGLIBOSE [Concomitant]
     Route: 065
  17. VOGLIBOSE [Concomitant]
     Route: 065
     Dates: start: 20120606, end: 20120823

REACTIONS (1)
  - Drug-induced liver injury [Recovering/Resolving]
